FAERS Safety Report 17066969 (Version 1)
Quarter: 2019Q4

REPORT INFORMATION
  Report Type: Spontaneous
  Country: CL (occurrence: CL)
  Receive Date: 20191115
  Receipt Date: 20191115
  Transmission Date: 20200122
  Serious: Yes (Life-Threatening)
  Sender: FDA-Public Use
  Company Number: None

PATIENT
  Age: 22 Year
  Sex: Male
  Weight: 66 kg

DRUGS (1)
  1. BENZAC AC [Suspect]
     Active Substance: BENZOYL PEROXIDE
     Indication: ACNE
     Route: 061

REACTIONS (2)
  - Lip swelling [None]
  - Throat tightness [None]

NARRATIVE: CASE EVENT DATE: 20191111
